FAERS Safety Report 6036478-X (Version None)
Quarter: 2009Q1

REPORT INFORMATION
  Report Type: 
  Country: None (occurrence: None)
  Receive Date: 20090112
  Receipt Date: 20090101
  Transmission Date: 20090719
  Serious: Yes (Hospitalization)
  Sender: FDA-Public Use
  Company Number: 100#03#2009-00032

PATIENT
  Age: 37 Year

DRUGS (3)
  1. VENLAFAXINE HCL [Suspect]
     Indication: DEPRESSION
     Dosage: 150 MG ONCE, ORAL
     Route: 048
  2. QUETIAPINE FUMARATE [Suspect]
     Indication: PSYCHOTIC DISORDER
     Dosage: 700 MG ONCE, ORAL
     Route: 048
     Dates: start: 20081127
  3. DEPAKOTE [Concomitant]

REACTIONS (1)
  - FAECALOMA [None]
